FAERS Safety Report 4314648-6 (Version None)
Quarter: 2004Q1

REPORT INFORMATION
  Report Type: 
  Country: None (occurrence: None)
  Receive Date: 20040308
  Receipt Date: 20040303
  Transmission Date: 20041129
  Serious: Yes (Hospitalization)
  Sender: FDA-Public Use
  Company Number: STA-AE-04-MTX-087

PATIENT
  Age: 61 Year
  Sex: Female

DRUGS (2)
  1. LANTAREL(METHOTREXATE, UNSPEC) [Suspect]
     Indication: RHEUMATOID ARTHRITIS
     Dosage: 10 MG 1 X PER 1 WK
  2. ENBREL [Suspect]
     Indication: RHEUMATOID ARTHRITIS
     Dosage: SC
     Route: 058

REACTIONS (1)
  - BRONCHITIS [None]
